FAERS Safety Report 6965359-X (Version None)
Quarter: 2010Q3

REPORT INFORMATION
  Report Type: 
  Country: None (occurrence: None)
  Receive Date: 20100903
  Receipt Date: 20100826
  Transmission Date: 20110219
  Serious: Yes (Hospitalization)
  Sender: FDA-Public Use
  Company Number: IE-JNJFOC-20100707512

PATIENT
  Sex: Male
  Weight: 101.8 kg

DRUGS (2)
  1. REMICADE [Suspect]
     Indication: COLITIS ULCERATIVE
     Route: 042
  2. ASACOLON [Concomitant]
     Indication: COLITIS ULCERATIVE
     Route: 048

REACTIONS (7)
  - LEFT VENTRICULAR DYSFUNCTION [None]
  - PLEURAL EFFUSION [None]
  - PYREXIA [None]
  - RASH MACULO-PAPULAR [None]
  - RASH PUSTULAR [None]
  - SEPSIS [None]
  - TACHYCARDIA [None]
